FAERS Safety Report 14836318 (Version 3)
Quarter: 2018Q2

REPORT INFORMATION
  Report Type: Spontaneous
  Country: PT (occurrence: PT)
  Receive Date: 20180502
  Receipt Date: 20180524
  Transmission Date: 20180711
  Serious: Yes (Other)
  Sender: FDA-Public Use
  Company Number: PT-AUROBINDO-AUR-APL-2018-012154

PATIENT
  Age: 39 Year
  Sex: Female

DRUGS (5)
  1. FLUOXETINE [Suspect]
     Active Substance: FLUOXETINE HYDROCHLORIDE
     Dosage: 100 MILLIGRAM
     Route: 065
  2. PYRIDOSTIGMINE [Suspect]
     Active Substance: PYRIDOSTIGMINE
     Dosage: 360 MILLIGRAM
     Route: 065
  3. PYRIDOSTIGMINE [Suspect]
     Active Substance: PYRIDOSTIGMINE
     Dosage: 240 MILLIGRAM
     Route: 065
  4. FLUOXETINE [Suspect]
     Active Substance: FLUOXETINE HYDROCHLORIDE
     Indication: MYASTHENIC SYNDROME
     Dosage: 40 MILLIGRAM, ONCE A DAY
     Route: 065
  5. PYRIDOSTIGMINE [Suspect]
     Active Substance: PYRIDOSTIGMINE
     Indication: NEUROMUSCULAR BLOCKADE
     Dosage: 180 MILLIGRAM, DAILY
     Route: 065

REACTIONS (5)
  - Speech disorder [Unknown]
  - Irritability [Unknown]
  - Condition aggravated [Recovered/Resolved]
  - Cognitive disorder [Unknown]
  - Myasthenic syndrome [Recovered/Resolved]
